FAERS Safety Report 15853480 (Version 2)
Quarter: 2019Q2

REPORT INFORMATION
  Report Type: Spontaneous
  Country: US (occurrence: US)
  Receive Date: 20190122
  Receipt Date: 20190612
  Transmission Date: 20190711
  Serious: No
  Sender: FDA-Public Use
  Company Number: US-TEVA-2018-US-897279

PATIENT
  Age: 31 Year
  Sex: Female
  Weight: 59.02 kg

DRUGS (14)
  1. PROVIGIL [Suspect]
     Active Substance: MODAFINIL
     Indication: OBSESSIVE-COMPULSIVE DISORDER
  2. PROVIGIL [Suspect]
     Active Substance: MODAFINIL
     Indication: SOMNOLENCE
  3. LUVOX [Concomitant]
     Active Substance: FLUVOXAMINE MALEATE
     Indication: OBSESSIVE-COMPULSIVE DISORDER
     Dosage: 200 MILLIGRAM DAILY; 100 MG IN AM- 200 MG IN PM
     Dates: start: 20180725
  4. LUVOX [Concomitant]
     Active Substance: FLUVOXAMINE MALEATE
     Indication: ANXIETY
     Dosage: PM
     Dates: start: 2010
  5. ZOFRAN [Concomitant]
     Active Substance: ONDANSETRON HYDROCHLORIDE
     Indication: NAUSEA
     Dosage: PER 6 HRS(AS NEEDED)
     Dates: start: 20180611, end: 20181101
  6. REGLAN [Concomitant]
     Active Substance: METOCLOPRAMIDE HYDROCHLORIDE
     Indication: MORNING SICKNESS
     Dosage: Q 6 HRS, PRN
     Route: 065
     Dates: start: 20180618, end: 20181101
  7. BUSPAR [Concomitant]
     Active Substance: BUSPIRONE HYDROCHLORIDE
     Indication: ANXIETY
     Dosage: 30 MILLIGRAM DAILY; AM
     Dates: start: 20180725
  8. UNISOM SLEEPTABS [Concomitant]
     Active Substance: DOXYLAMINE SUCCINATE
     Indication: MORNING SICKNESS
     Route: 065
     Dates: start: 2018, end: 20181101
  9. BUSPAR [Concomitant]
     Active Substance: BUSPIRONE HYDROCHLORIDE
     Indication: OBSESSIVE-COMPULSIVE DISORDER
     Dosage: 30 MILLIGRAM DAILY;
     Dates: start: 2016
  10. PHENERGAN [Concomitant]
     Active Substance: PROMETHAZINE HYDROCHLORIDE
     Indication: MORNING SICKNESS
     Dosage: Q6 HRS, PRN
     Route: 065
     Dates: start: 20180907, end: 20181101
  11. PROVIGIL [Suspect]
     Active Substance: MODAFINIL
     Indication: SOMNOLENCE
     Dosage: 100 MILLIGRAM DAILY;
     Dates: start: 2013
  12. LUVOX [Concomitant]
     Active Substance: FLUVOXAMINE MALEATE
     Dosage: 100 DOSAGE FORMS DAILY;
     Route: 065
     Dates: start: 2016
  13. ZOFRAN [Concomitant]
     Active Substance: ONDANSETRON HYDROCHLORIDE
     Indication: VOMITING
  14. B6 [Concomitant]
     Active Substance: PYRIDOXINE HYDROCHLORIDE
     Indication: MORNING SICKNESS
     Route: 065
     Dates: start: 2018, end: 20181101

REACTIONS (5)
  - Pre-eclampsia [Unknown]
  - Live birth [Unknown]
  - Premature labour [Unknown]
  - Maternal exposure during pregnancy [Unknown]
  - Gestational hypertension [Unknown]

NARRATIVE: CASE EVENT DATE: 20181009
